FAERS Safety Report 5083820-2 (Version None)
Quarter: 2006Q3

REPORT INFORMATION
  Report Type: 
  Country: None (occurrence: None)
  Receive Date: 20060818
  Receipt Date: 20060525
  Transmission Date: 20061208
  Serious: Yes (Congenital Anomaly)
  Sender: FDA-Public Use
  Company Number: US-GILEAD-2006-0009660

PATIENT
  Sex: Female
  Weight: 2.28 kg

DRUGS (10)
  1. TRUVADA [Suspect]
     Route: 064
     Dates: end: 20060429
  2. TRUVADA [Suspect]
     Route: 064
     Dates: end: 20051017
  3. NORVIR [Concomitant]
     Route: 064
     Dates: end: 20060429
  4. NORVIR [Concomitant]
     Route: 064
     Dates: end: 20051017
  5. ATAZANAVIR [Concomitant]
     Route: 064
     Dates: end: 20060429
  6. ATAZANAVIR [Concomitant]
     Route: 064
     Dates: end: 20051017
  7. VIRACEPT [Concomitant]
     Route: 064
     Dates: start: 20051017, end: 20060429
  8. COMBIVIR [Concomitant]
     Route: 064
     Dates: start: 20051017, end: 20060429
  9. ZIDOVUDINE [Concomitant]
     Route: 064
     Dates: start: 20060429, end: 20060429
  10. BETALOL [Concomitant]
     Route: 064
     Dates: start: 20051101

REACTIONS (3)
  - DRUG EXPOSURE DURING PREGNANCY [None]
  - POLYDACTYLY [None]
  - PREMATURE BABY [None]
